FAERS Safety Report 20633885 (Version 4)
Quarter: 2022Q3

REPORT INFORMATION
  Report Type: Spontaneous
  Country: US (occurrence: US)
  Receive Date: 20220324
  Receipt Date: 20220804
  Transmission Date: 20221027
  Serious: Yes (Hospitalization, Other)
  Sender: FDA-Public Use
  Company Number: US-CATALYST PHARMACEUTICALS, INC-2022CAT00134

PATIENT
  Sex: Male
  Weight: 104.49 kg

DRUGS (19)
  1. FIRDAPSE [Suspect]
     Active Substance: AMIFAMPRIDINE PHOSPHATE
     Indication: Myasthenic syndrome
     Dosage: 8 TABLETS (80 MG) TOTAL DAILY IN DIVIDED DOSES
     Route: 048
     Dates: start: 20201130
  2. FIRDAPSE [Suspect]
     Active Substance: AMIFAMPRIDINE PHOSPHATE
     Dosage: 8 TABLETS (80 MG) TOTAL DAILY (3 TABLETS IN THE MORNING, 2 AT NOON, 3 TABLETS IN THE EVENING)
     Route: 048
     Dates: start: 20201130, end: 20220614
  3. FIRDAPSE [Suspect]
     Active Substance: AMIFAMPRIDINE PHOSPHATE
     Dosage: 8 TABLETS (80 MG) TOTAL DAILY (3 TABLETS IN THE MORNING, 2 AT NOON, 3 TABLETS IN THE EVENING)
     Route: 048
     Dates: start: 2022
  4. NAPROXEN [Concomitant]
     Active Substance: NAPROXEN
     Dosage: 250 MG, 2X/DAY
  5. ELIQUIS [Concomitant]
     Active Substance: APIXABAN
     Dosage: UNK
     Dates: end: 202201
  6. AMIODARONE HYDROCHLORIDE [Concomitant]
     Active Substance: AMIODARONE HYDROCHLORIDE
     Dosage: 200 MG, 1X/DAY
  7. VITAMIN D3 [Concomitant]
     Active Substance: CHOLECALCIFEROL
     Dosage: UNK, 1X/DAY
  8. VITAMIN D3 [Concomitant]
     Active Substance: CHOLECALCIFEROL
     Dosage: 1000 IU, 1X/DAY
  9. LATANOPROST [Concomitant]
     Active Substance: LATANOPROST
     Dosage: UNK AT BEDTIME
  10. MYCOPHENOLATE MOFETIL [Concomitant]
     Active Substance: MYCOPHENOLATE MOFETIL
     Dosage: 1000 MG, 1X/DAY
  11. MYCOPHENOLATE MOFETIL [Concomitant]
     Active Substance: MYCOPHENOLATE MOFETIL
     Dosage: 100 MG, 2X/DAY
  12. HYDROXYCHLOROQUINE [Concomitant]
     Active Substance: HYDROXYCHLOROQUINE
     Dosage: 200 MG, 1X/DAY
  13. TRAZODONE [Concomitant]
     Active Substance: TRAZODONE HYDROCHLORIDE
     Dosage: 50 MG, 1X/DAY AT BEDTIME
  14. MULTIVITAMIN FOR MEN 50+ [Concomitant]
     Dosage: 1 DOSAGE UNITS, 1X/DAY
  15. VITAMIN B12 [Concomitant]
     Active Substance: CYANOCOBALAMIN
     Dosage: 1000 ?G, 1X/DAY
  16. AMILORIDE [Concomitant]
     Active Substance: AMILORIDE
     Dosage: 5 MG, 1X/DAY
  17. CHLORTHALIDONE [Concomitant]
     Active Substance: CHLORTHALIDONE
     Dosage: 25 MG, 2X/DAY
  18. LOSARTAN [Concomitant]
     Active Substance: LOSARTAN
     Dosage: 100 MG, 1X/DAY
  19. GABAPENTIN [Concomitant]
     Active Substance: GABAPENTIN
     Dosage: 300 MG, 3X/DAY

REACTIONS (14)
  - Condition aggravated [Recovering/Resolving]
  - Osteoarthritis [Recovering/Resolving]
  - Cerebral small vessel ischaemic disease [Not Recovered/Not Resolved]
  - Neuropathy peripheral [Not Recovered/Not Resolved]
  - Arteriosclerosis coronary artery [Recovering/Resolving]
  - Malaise [Recovering/Resolving]
  - Emotional distress [Recovering/Resolving]
  - Decreased appetite [Recovering/Resolving]
  - Depressed mood [Recovering/Resolving]
  - Apathy [Recovering/Resolving]
  - Pruritus [Not Recovered/Not Resolved]
  - Headache [Recovering/Resolving]
  - Asthenia [Recovering/Resolving]
  - Unevaluable event [Recovering/Resolving]

NARRATIVE: CASE EVENT DATE: 20220101
